FAERS Safety Report 14621072 (Version 2)
Quarter: 2018Q2

REPORT INFORMATION
  Report Type: Spontaneous
  Country: NL (occurrence: NL)
  Receive Date: 20180309
  Receipt Date: 20180409
  Transmission Date: 20180711
  Serious: Yes (Hospitalization)
  Sender: FDA-Public Use
  Company Number: NL-ROCHE-2081514

PATIENT
  Age: 66 Year
  Sex: Male

DRUGS (6)
  1. COBIMETINIB. [Suspect]
     Active Substance: COBIMETINIB
     Indication: PALLIATIVE CARE
     Route: 050
     Dates: start: 20171005
  2. VEMURAFENIB. [Suspect]
     Active Substance: VEMURAFENIB
     Indication: PALLIATIVE CARE
     Route: 050
     Dates: start: 20171005
  3. ROSUVASTATINE [Concomitant]
     Active Substance: ROSUVASTATIN
     Dosage: 1DD1
     Route: 050
  4. METOCLOPRAMIDE. [Concomitant]
     Active Substance: METOCLOPRAMIDE
     Dosage: 1DD1
     Route: 050
  5. CANDESARTAN. [Concomitant]
     Active Substance: CANDESARTAN
     Dosage: 1DD1
     Route: 050
  6. METOPROLOL. [Concomitant]
     Active Substance: METOPROLOL
     Dosage: 1DD1
     Route: 050

REACTIONS (2)
  - Colitis [Recovered/Resolved]
  - Rash [Recovered/Resolved]
